FAERS Safety Report 12759445 (Version 1)
Quarter: 2016Q3

REPORT INFORMATION
  Report Type: Spontaneous
  Country: US (occurrence: US)
  Receive Date: 20160919
  Receipt Date: 20160919
  Transmission Date: 20161109
  Serious: Yes (Hospitalization)
  Sender: FDA-Public Use
  Company Number: None

PATIENT
  Age: 22 Year
  Sex: Female
  Weight: 61.38 kg

DRUGS (12)
  1. NEXPLANON [Concomitant]
     Active Substance: ETONOGESTREL
  2. FLUTICASONE [Concomitant]
     Active Substance: FLUTICASONE\FLUTICASONE PROPIONATE
  3. CALCIUM/VIT D [Concomitant]
  4. AMIKACIN [Concomitant]
     Active Substance: AMIKACIN
  5. MEFLOQUINE [Concomitant]
     Active Substance: MEFLOQUINE
  6. MIRALAX [Concomitant]
     Active Substance: POLYETHYLENE GLYCOL 3350
  7. TYGACIL [Suspect]
     Active Substance: TIGECYCLINE
     Indication: INFECTION
     Route: 040
     Dates: start: 20160831, end: 20160918
  8. ADVAIR HFA [Concomitant]
     Active Substance: FLUTICASONE PROPIONATE\SALMETEROL XINAFOATE
  9. ALBUTEROL HHN [Concomitant]
  10. AZITHROMYCIN ANHYDROUS. [Concomitant]
     Active Substance: AZITHROMYCIN ANHYDROUS
  11. SIRTURO [Concomitant]
     Active Substance: BEDAQUILINE FUMARATE
  12. AQUADEKS [Concomitant]
     Active Substance: MINERALS\VITAMINS

REACTIONS (1)
  - Pancreatitis acute [None]

NARRATIVE: CASE EVENT DATE: 20160919
